FAERS Safety Report 6354763-9 (Version None)
Quarter: 2009Q3

REPORT INFORMATION
  Report Type: 
  Country: None (occurrence: None)
  Receive Date: 20090909
  Receipt Date: 20090827
  Transmission Date: 20100115
  Serious: Yes (Hospitalization)
  Sender: FDA-Public Use
  Company Number: 2009EU003349

PATIENT
  Age: 93 Year
  Sex: Female

DRUGS (9)
  1. VESICARE [Suspect]
     Indication: URINARY INCONTINENCE
     Dosage: 5 MG, UID/QD, ORAL
     Route: 048
     Dates: end: 20090727
  2. BEZAFIBRATE (BEZAFIBRATE) [Concomitant]
  3. CARTEOLOL (CARTEOLOL), 2% [Concomitant]
  4. CLOMETHIAZOLE (CLOMETHIAZOLE) [Concomitant]
  5. ENALAPRIL MALEATE [Concomitant]
  6. FUROSEMIDE [Concomitant]
  7. ISOSORBIDE MONONITRATE [Concomitant]
  8. LATANOPROST [Concomitant]
  9. PILOCARPINE [Concomitant]

REACTIONS (1)
  - ELECTROCARDIOGRAM QT PROLONGED [None]
